FAERS Safety Report 18282685 (Version 1)
Quarter: 2020Q3

REPORT INFORMATION
  Report Type: Spontaneous
  Country: US (occurrence: US)
  Receive Date: 20200918
  Receipt Date: 20200918
  Transmission Date: 20201103
  Serious: Yes (Hospitalization)
  Sender: FDA-Public Use
  Company Number: None

PATIENT
  Age: 24 Year
  Sex: Female
  Weight: 66 kg

DRUGS (3)
  1. FERRLECIT [Suspect]
     Active Substance: SODIUM FERRIC GLUCONATE COMPLEX
     Indication: SERUM FERRITIN DECREASED
     Dosage: ?          OTHER FREQUENCY:BASED ON FERRITIN;?
     Route: 041
     Dates: start: 20200911, end: 20200911
  2. FAMOTIDINE 20 MG CAP [Concomitant]
     Dates: start: 20200911, end: 20200911
  3. DIPHENHYDRAMINE 50 MG CAPSULES [Concomitant]
     Dates: start: 20200911, end: 20200911

REACTIONS (4)
  - Hyperhidrosis [None]
  - Swelling [None]
  - Arthralgia [None]
  - Chest discomfort [None]

NARRATIVE: CASE EVENT DATE: 20200911
